FAERS Safety Report 12918869 (Version 1)
Quarter: 2016Q4

REPORT INFORMATION
  Report Type: Report from Study
  Country: MX (occurrence: MX)
  Receive Date: 20161108
  Receipt Date: 20161108
  Transmission Date: 20170207
  Serious: Yes (Hospitalization, Other)
  Sender: FDA-Public Use
  Company Number: PHHY2016MX043809

PATIENT
  Age: 58 Year
  Sex: Female
  Weight: 52 kg

DRUGS (4)
  1. AFINITOR [Suspect]
     Active Substance: EVEROLIMUS
     Indication: HEPATIC CANCER
     Dosage: 1 DF, QD
     Route: 048
     Dates: end: 201606
  2. AROMASIN [Concomitant]
     Active Substance: EXEMESTANE
     Indication: BREAST CANCER
     Dosage: 1 OT, QD
     Route: 048
     Dates: start: 20150815, end: 201606
  3. OMEPRAZOLE. [Concomitant]
     Active Substance: OMEPRAZOLE
     Indication: DYSPEPSIA
     Dosage: 1 OT, QD
     Route: 048
     Dates: start: 2013
  4. AFINITOR [Suspect]
     Active Substance: EVEROLIMUS
     Indication: LUNG NEOPLASM MALIGNANT
     Dosage: 1 DF, QD
     Route: 048
     Dates: start: 20150815

REACTIONS (24)
  - Back pain [Not Recovered/Not Resolved]
  - Pain in extremity [Not Recovered/Not Resolved]
  - Metastases to bone [Unknown]
  - Cough [Not Recovered/Not Resolved]
  - Diarrhoea [Unknown]
  - Pyrexia [Recovered/Resolved]
  - Neoplasm [Not Recovered/Not Resolved]
  - Dizziness [Unknown]
  - Mouth ulceration [Recovered/Resolved]
  - Fatigue [Not Recovered/Not Resolved]
  - Pain [Not Recovered/Not Resolved]
  - Dyspnoea [Not Recovered/Not Resolved]
  - Malaise [Not Recovered/Not Resolved]
  - Pyrexia [Recovered/Resolved]
  - Decreased immune responsiveness [Not Recovered/Not Resolved]
  - Urticaria [Recovered/Resolved]
  - Fall [Recovered/Resolved]
  - Acne [Unknown]
  - Mouth ulceration [Unknown]
  - Myositis [Not Recovered/Not Resolved]
  - Product use issue [Unknown]
  - Asthenia [Unknown]
  - Oral pain [Unknown]
  - Feeding disorder [Unknown]

NARRATIVE: CASE EVENT DATE: 201508
